FAERS Safety Report 6735338-6 (Version None)
Quarter: 2010Q2

REPORT INFORMATION
  Report Type: 
  Country: None (occurrence: None)
  Receive Date: 20100521
  Receipt Date: 20100510
  Transmission Date: 20101027
  Serious: Yes (Hospitalization)
  Sender: FDA-Public Use
  Company Number: AE-TEVA-234360ISR

PATIENT
  Age: 14 Year
  Sex: Male

DRUGS (3)
  1. CARBOPLATIN [Suspect]
     Indication: MEDULLOBLASTOMA
  2. VINCRISTINE [Suspect]
     Indication: MEDULLOBLASTOMA
  3. CYCLOPHOSPHAMIDE [Suspect]
     Indication: MEDULLOBLASTOMA

REACTIONS (1)
  - HEPATIC VEIN OCCLUSION [None]
